FAERS Safety Report 17914130 (Version 1)
Quarter: 2020Q2

REPORT INFORMATION
  Report Type: Spontaneous
  Country: US (occurrence: US)
  Receive Date: 20200618
  Receipt Date: 20200618
  Transmission Date: 20200714
  Serious: No
  Sender: FDA-Public Use
  Company Number: US-ROCHE-2560124

PATIENT
  Sex: Female
  Weight: 108.96 kg

DRUGS (1)
  1. XOFLUZA [Suspect]
     Active Substance: BALOXAVIR MARBOXIL
     Indication: INFLUENZA
     Dosage: TWO 40 MG TABLETS
     Route: 048
     Dates: start: 20200227

REACTIONS (2)
  - No adverse event [Unknown]
  - Product packaging difficult to open [Unknown]
